FAERS Safety Report 22528919 (Version 1)
Quarter: 2023Q2

REPORT INFORMATION
  Report Type: Spontaneous
  Country: CN (occurrence: CN)
  Receive Date: 20230607
  Receipt Date: 20230607
  Transmission Date: 20230722
  Serious: Yes (Other)
  Sender: FDA-Public Use
  Company Number: None

PATIENT
  Age: 38 Year
  Sex: Female
  Weight: 50 kg

DRUGS (6)
  1. CYCLOPHOSPHAMIDE [Suspect]
     Active Substance: CYCLOPHOSPHAMIDE
     Indication: Breast cancer female
     Dosage: 830 MG, QD, DILUTED WITH 45 ML OF SODIUM CHLORIDE, SECOND CHEMOTHERAPY
     Route: 042
     Dates: start: 20230113, end: 20230113
  2. CYCLOPHOSPHAMIDE [Suspect]
     Active Substance: CYCLOPHOSPHAMIDE
     Indication: Chemotherapy
  3. SODIUM CHLORIDE [Suspect]
     Active Substance: SODIUM CHLORIDE
     Indication: Medication dilution
     Dosage: 45 ML, QD, USED TO DILUTE 830 MG OF CYCLOPHOSPHAMIDE
     Route: 042
     Dates: start: 20230113, end: 20230113
  4. SODIUM CHLORIDE [Suspect]
     Active Substance: SODIUM CHLORIDE
     Dosage: 100ML, QD, USED TO DILUTE 118 MG OF EPIRUBICIN HYDROCHLORIDE
     Route: 041
     Dates: start: 20230113, end: 20230113
  5. EPIRUBICIN HYDROCHLORIDE [Suspect]
     Active Substance: EPIRUBICIN HYDROCHLORIDE
     Indication: Breast cancer female
     Dosage: 118 MG, QD, DILUTED WITH 100 ML OF SODIUM CHLORIDE, SECOND CHEMOTHERAPY
     Route: 041
     Dates: start: 20230113, end: 20230113
  6. EPIRUBICIN HYDROCHLORIDE [Suspect]
     Active Substance: EPIRUBICIN HYDROCHLORIDE
     Indication: Chemotherapy

REACTIONS (2)
  - White blood cell count decreased [Recovered/Resolved]
  - Agranulocytosis [Recovered/Resolved]

NARRATIVE: CASE EVENT DATE: 20230125
